FAERS Safety Report 5088442-5 (Version None)
Quarter: 2006Q3

REPORT INFORMATION
  Report Type: 
  Country: None (occurrence: None)
  Receive Date: 20060821
  Receipt Date: 20060802
  Transmission Date: 20061208
  Serious: Yes (Other)
  Sender: FDA-Public Use
  Company Number: CHPA2006US07605

PATIENT
  Sex: Female

DRUGS (1)
  1. TAVIST ALLERGY (FORMERLY TAVIST-1) TABS (NCH) (CLEMASTINE HYDROGEN FUM [Suspect]
     Indication: CHRONIC SINUSITIS
     Dosage: 1.34 MG, QD, ORAL
     Route: 048

REACTIONS (1)
  - PHOTOPSIA [None]
